FAERS Safety Report 9891724 (Version 5)
Quarter: 2014Q2

REPORT INFORMATION
  Report Type: Report from Study
  Country: CA (occurrence: CA)
  Receive Date: 20140212
  Receipt Date: 20140506
  Transmission Date: 20141212
  Serious: Yes (Other)
  Sender: FDA-Public Use
  Company Number: PHHY2011CA108258

PATIENT
  Age: 50 Year
  Sex: Male

DRUGS (4)
  1. SANDOSTATIN [Suspect]
     Indication: NEUROENDOCRINE TUMOUR
     Dosage: 50 UG, QD
     Route: 058
     Dates: start: 20110401, end: 20111201
  2. SANDOSTATIN LAR [Suspect]
     Indication: NEUROENDOCRINE TUMOUR
     Dosage: 30 MG, EVERY 2 WEEKS
     Route: 030
     Dates: start: 20111202
  3. SANDOSTATIN LAR [Suspect]
     Indication: PANCREATITIS
  4. SANDOSTATIN LAR [Suspect]
     Indication: PANCREATITIS

REACTIONS (16)
  - Blood pressure increased [Unknown]
  - Lethargy [Unknown]
  - Pain [Unknown]
  - Gait disturbance [Unknown]
  - Feeling abnormal [Unknown]
  - Skin abrasion [Unknown]
  - Scab [Unknown]
  - Arthralgia [Unknown]
  - Tenderness [Unknown]
  - Hypoaesthesia [Unknown]
  - Scratch [Unknown]
  - Muscle tightness [Unknown]
  - Abdominal discomfort [Unknown]
  - Pruritus [Recovered/Resolved]
  - Nausea [Unknown]
  - Heart rate decreased [Unknown]
